FAERS Safety Report 7204107-5 (Version None)
Quarter: 2010Q4

REPORT INFORMATION
  Report Type: 
  Country: None (occurrence: None)
  Receive Date: 20101230
  Receipt Date: 20101221
  Transmission Date: 20110411
  Serious: Yes (Other)
  Sender: FDA-Public Use
  Company Number: CH-PFIZER INC-2010176297

PATIENT
  Age: 48 Year
  Sex: Female
  Weight: 51 kg

DRUGS (11)
  1. LYRICA [Suspect]
     Dosage: 150 MG, 2X/DAY
     Route: 048
     Dates: start: 20101106
  2. SIRDALUD [Suspect]
     Indication: HEMIPLEGIA
     Dosage: 6 MG, 2X/DAY
     Route: 048
     Dates: start: 20080101
  3. OXYNORM [Suspect]
     Dosage: 5 MG, 2X/DAY
     Route: 048
     Dates: start: 20101201, end: 20101203
  4. CITALOPRAM 1A PHARMA [Suspect]
     Dosage: 20 MG, 1X/DAY
     Route: 048
     Dates: start: 20080101
  5. TRANXILIUM [Concomitant]
     Dosage: 5 MG, AS NEEDED
     Dates: start: 20090101
  6. DAFALGAN [Concomitant]
     Dosage: 1 G, 4X/DAY
     Route: 048
     Dates: start: 20070101
  7. METAMIZOLE [Concomitant]
     Dosage: 1 G, 4X/DAY
     Route: 048
     Dates: start: 20101201, end: 20101203
  8. NEXIUM [Concomitant]
     Dosage: 20 MG, 1X/DAY
     Route: 048
     Dates: start: 20101201, end: 20101204
  9. IMPORTAL [Concomitant]
     Dosage: 20 ML, 1X/DAY
     Route: 048
     Dates: start: 20101101
  10. FOLIC ACID [Concomitant]
     Dosage: 5 MG, 1X/DAY
     Route: 048
     Dates: start: 20101015
  11. BULBOID [Concomitant]
     Dosage: UNK
     Dates: start: 20070101

REACTIONS (2)
  - BLOOD PRESSURE SYSTOLIC DECREASED [None]
  - SINUS BRADYCARDIA [None]
